FAERS Safety Report 9357308 (Version 2)
Quarter: 2013Q3

REPORT INFORMATION
  Report Type: Spontaneous
  Country: IQ (occurrence: IQ)
  Receive Date: 20130620
  Receipt Date: 20130703
  Transmission Date: 20140515
  Serious: Yes (Other)
  Sender: FDA-Public Use
  Company Number: IQ-JNJFOC-20130609197

PATIENT
  Sex: 0

DRUGS (1)
  1. TOPIRAMATE [Suspect]
     Indication: EPILEPSY
     Route: 048

REACTIONS (6)
  - Convulsion [Unknown]
  - Uveitis [Unknown]
  - Angle closure glaucoma [Unknown]
  - Product counterfeit [Unknown]
  - Weight decreased [Unknown]
  - Incorrect dose administered [Unknown]
